FAERS Safety Report 14194941 (Version 1)
Quarter: 2017Q4

REPORT INFORMATION
  Report Type: Spontaneous
  Country: US (occurrence: US)
  Receive Date: 20171116
  Receipt Date: 20171116
  Transmission Date: 20180321
  Serious: Yes (Other)
  Sender: FDA-Public Use
  Company Number: US-BRISTOL-MYERS SQUIBB COMPANY-BMS-2017-103645

PATIENT
  Age: 15 Year
  Sex: Female

DRUGS (3)
  1. HYDROXYUREA. [Suspect]
     Active Substance: HYDROXYUREA
     Indication: NEOPLASM
     Route: 065
  2. DECITABINE. [Suspect]
     Active Substance: DECITABINE
     Indication: NEOPLASM
     Dosage: 20 MG/M2, QD
     Route: 065
  3. VORINOSTAT [Suspect]
     Active Substance: VORINOSTAT
     Indication: NEOPLASM
     Dosage: 200 MG, BID
     Route: 065

REACTIONS (6)
  - Product use issue [Unknown]
  - Mental status changes [Unknown]
  - Bone marrow failure [Unknown]
  - Respiratory distress [Unknown]
  - Pain [Unknown]
  - Hypoaesthesia [Unknown]
